FAERS Safety Report 6253785-6 (Version None)
Quarter: 2009Q3

REPORT INFORMATION
  Report Type: 
  Country: None (occurrence: None)
  Receive Date: 20090702
  Receipt Date: 20090630
  Transmission Date: 20100115
  Serious: Yes (Hospitalization)
  Sender: FDA-Public Use
  Company Number: US-RB-015997-09

PATIENT
  Age: 70 Year
  Sex: Female

DRUGS (9)
  1. SUBOXONE [Suspect]
     Route: 060
     Dates: start: 20090501, end: 20090517
  2. SUBOXONE [Suspect]
     Dosage: TOOK 24 MG AS A SINGLE DOSE.
     Route: 060
     Dates: start: 20090519, end: 20090519
  3. SUBOXONE [Suspect]
     Route: 060
     Dates: start: 20090520
  4. ALBUTEROL [Concomitant]
     Indication: CHRONIC OBSTRUCTIVE PULMONARY DISEASE
     Dosage: USED AS NEEDED
     Route: 055
  5. HYDROCHLOROTHIAZIDE [Concomitant]
     Indication: HYPERTENSION
     Route: 048
  6. ZESTRIL [Concomitant]
     Indication: HYPERTENSION
     Route: 048
  7. LIPITOR [Concomitant]
     Route: 048
  8. VITAMINS [Concomitant]
     Indication: ROUTINE HEALTH MAINTENANCE
     Dosage: 1 TABLET DAILY
     Route: 048
  9. CALCIUM [Concomitant]
     Indication: OSTEOPOROSIS

REACTIONS (14)
  - ANXIETY [None]
  - DIARRHOEA [None]
  - DRUG DEPENDENCE [None]
  - EYE IRRITATION [None]
  - FEELING ABNORMAL [None]
  - GASTROENTERITIS VIRAL [None]
  - HEADACHE [None]
  - HYPERHIDROSIS [None]
  - INSOMNIA [None]
  - PNEUMONIA [None]
  - STRESS [None]
  - TREMOR [None]
  - VOMITING [None]
  - WITHDRAWAL SYNDROME [None]
